FAERS Safety Report 20972400 (Version 2)
Quarter: 2025Q2

REPORT INFORMATION
  Report Type: Spontaneous
  Country: US (occurrence: US)
  Receive Date: 20220617
  Receipt Date: 20250628
  Transmission Date: 20250717
  Serious: Yes (Disabling, Other)
  Sender: PURDUE
  Company Number: US-PURDUE-USA-2020-0247363

PATIENT
  Sex: Male

DRUGS (6)
  1. OXYCONTIN [Suspect]
     Active Substance: OXYCODONE HYDROCHLORIDE
     Indication: Product used for unknown indication
     Route: 048
  2. BUPRENORPHINE [Suspect]
     Active Substance: BUPRENORPHINE
     Indication: Product used for unknown indication
     Route: 062
  3. BUPRENORPHINE [Suspect]
     Active Substance: BUPRENORPHINE
     Indication: Product used for unknown indication
     Route: 065
  4. HYDROCODONE BITARTRATE AND ACETAMINOPHEN [Suspect]
     Active Substance: ACETAMINOPHEN\HYDROCODONE BITARTRATE
     Indication: Product used for unknown indication
     Route: 048
  5. LORTAB [Suspect]
     Active Substance: ACETAMINOPHEN\HYDROCODONE BITARTRATE
     Indication: Product used for unknown indication
     Route: 065
  6. METHADONE [Suspect]
     Active Substance: METHADONE HYDROCHLORIDE
     Indication: Product used for unknown indication
     Route: 065

REACTIONS (6)
  - Overdose [Unknown]
  - Drug dependence [Unknown]
  - Pain [Unknown]
  - Emotional distress [Unknown]
  - Quality of life decreased [Unknown]
  - Drug withdrawal syndrome [Unknown]
